FAERS Safety Report 5047559-1 (Version None)
Quarter: 2006Q3

REPORT INFORMATION
  Report Type: 
  Country: None (occurrence: None)
  Receive Date: 20060711
  Receipt Date: 20060614
  Transmission Date: 20061208
  Serious: Yes (Hospitalization, Other)
  Sender: FDA-Public Use
  Company Number: US-AMGEN-STX183094

PATIENT
  Sex: Female

DRUGS (2)
  1. ENBREL [Suspect]
     Indication: RHEUMATOID ARTHRITIS
     Route: 058
     Dates: start: 19990201
  2. METHOTREXATE [Concomitant]
     Route: 048

REACTIONS (5)
  - HIP ARTHROPLASTY [None]
  - OSTEOPOROSIS [None]
  - PERICARDIAL EFFUSION [None]
  - SPINAL FRACTURE [None]
  - SURGERY [None]
